FAERS Safety Report 6870207-2 (Version None)
Quarter: 2010Q3

REPORT INFORMATION
  Report Type: 
  Country: None (occurrence: None)
  Receive Date: 20100723
  Receipt Date: 20100715
  Transmission Date: 20110219
  Serious: Yes (Other)
  Sender: FDA-Public Use
  Company Number: US-BIOGENIDEC-2010BI024094

PATIENT
  Age: 57 Year
  Sex: Female

DRUGS (2)
  1. TYSABRI [Suspect]
     Indication: MULTIPLE SCLEROSIS
     Route: 042
     Dates: start: 20071120
  2. AVONEX [Concomitant]
     Indication: MULTIPLE SCLEROSIS
     Route: 030

REACTIONS (7)
  - BASAL CELL CARCINOMA [None]
  - EYELID OPERATION [None]
  - FATIGUE [None]
  - MALIGNANT MELANOMA [None]
  - MEMORY IMPAIRMENT [None]
  - THYROID CANCER [None]
  - TOOTHACHE [None]
